FAERS Safety Report 7331755-4 (Version None)
Quarter: 2011Q1

REPORT INFORMATION
  Report Type: 
  Country: None (occurrence: None)
  Receive Date: 20110304
  Receipt Date: 20110221
  Transmission Date: 20110831
  Serious: Yes (Hospitalization)
  Sender: FDA-Public Use
  Company Number: US-SANOFI-AVENTIS-2011SA011732

PATIENT
  Sex: Female

DRUGS (6)
  1. MULTAQ [Suspect]
     Route: 048
     Dates: start: 20110201
  2. MULTAQ [Suspect]
     Indication: ATRIAL FIBRILLATION
     Route: 048
     Dates: start: 20110129, end: 20110131
  3. PROGESTERONE [Concomitant]
  4. MAXZIDE [Concomitant]
  5. THYROID TAB [Concomitant]
  6. POTASSIUM CHLORIDE [Concomitant]

REACTIONS (6)
  - DYSPNOEA [None]
  - VENTRICULAR EXTRASYSTOLES [None]
  - NAUSEA [None]
  - OEDEMA PERIPHERAL [None]
  - ATRIAL FIBRILLATION [None]
  - FATIGUE [None]
